FAERS Safety Report 8339956 (Version 4)
Quarter: 2013Q4

REPORT INFORMATION
  Report Type: Report from Study
  Country: JP (occurrence: JP)
  Receive Date: 20120105
  Receipt Date: 20131108
  Transmission Date: 20140711
  Serious: Yes (Death, Life-Threatening, Other)
  Sender: FDA-Public Use
  Company Number: JP-009507513-2011SP060038

PATIENT
  Age: 42 Year
  Sex: Male
  Weight: 84 kg

DRUGS (60)
  1. TEMODAL [Suspect]
     Indication: GLIOBLASTOMA MULTIFORME
     Dosage: 75 MG/M2, QD
     Route: 048
     Dates: start: 20061128, end: 20061226
  2. TEMODAL [Suspect]
     Indication: GLIOBLASTOMA MULTIFORME
     Dosage: 150 MG/M2, QD
     Route: 048
     Dates: start: 20070125, end: 20090518
  3. TEMODAL [Suspect]
     Dosage: 150 MG/M2, QD
     Route: 048
     Dates: start: 20090928, end: 20100504
  4. TEMODAL [Suspect]
     Dosage: 150 MG/M2, QD
     Route: 048
     Dates: start: 20100611, end: 20101005
  5. TEMODAL [Suspect]
     Route: 048
     Dates: start: 20070125, end: 20070129
  6. TEMODAL [Suspect]
     Route: 048
     Dates: start: 20070222, end: 20070226
  7. TEMODAL [Suspect]
     Route: 048
     Dates: start: 20070322, end: 20070326
  8. TEMODAL [Suspect]
     Route: 048
     Dates: start: 20070419, end: 20070423
  9. TEMODAL [Suspect]
     Route: 048
     Dates: start: 20070517, end: 20070521
  10. TEMODAL [Suspect]
     Route: 048
     Dates: start: 20070614, end: 20070618
  11. TEMODAL [Suspect]
     Route: 048
     Dates: start: 20070712, end: 20070716
  12. TEMODAL [Suspect]
     Route: 048
     Dates: start: 20070809, end: 20070813
  13. TEMODAL [Suspect]
     Route: 048
     Dates: start: 20070906, end: 20070910
  14. TEMODAL [Suspect]
     Route: 048
     Dates: start: 20071004, end: 20071008
  15. TEMODAL [Suspect]
     Route: 048
     Dates: start: 20071101, end: 20071105
  16. TEMODAL [Suspect]
     Route: 048
     Dates: start: 20071129, end: 20071203
  17. TEMODAL [Suspect]
     Route: 048
     Dates: start: 20071227, end: 20071231
  18. TEMODAL [Suspect]
     Route: 048
     Dates: start: 20080124, end: 20080128
  19. TEMODAL [Suspect]
     Route: 048
     Dates: start: 20080221, end: 20080225
  20. TEMODAL [Suspect]
     Route: 048
     Dates: start: 20080320, end: 20080324
  21. TEMODAL [Suspect]
     Route: 048
     Dates: start: 20080417, end: 20080421
  22. TEMODAL [Suspect]
     Route: 048
     Dates: start: 20080515, end: 20080519
  23. TEMODAL [Suspect]
     Route: 048
     Dates: start: 20080612, end: 20080616
  24. TEMODAL [Suspect]
     Route: 048
     Dates: start: 20080710, end: 20080714
  25. TEMODAL [Suspect]
     Route: 048
     Dates: start: 20080807, end: 20080811
  26. TEMODAL [Suspect]
     Route: 048
     Dates: start: 20080904, end: 20080908
  27. TEMODAL [Suspect]
     Route: 048
     Dates: start: 20081002, end: 20081006
  28. TEMODAL [Suspect]
     Route: 048
     Dates: start: 20081030, end: 20081103
  29. TEMODAL [Suspect]
     Route: 048
     Dates: start: 20081128, end: 20081202
  30. TEMODAL [Suspect]
     Route: 048
     Dates: start: 20081225, end: 20081229
  31. TEMODAL [Suspect]
     Route: 048
     Dates: start: 20090122, end: 20090126
  32. TEMODAL [Suspect]
     Route: 048
     Dates: start: 20090219, end: 20090223
  33. TEMODAL [Suspect]
     Route: 048
     Dates: start: 20090319, end: 20090323
  34. TEMODAL [Suspect]
     Route: 048
     Dates: start: 20090416, end: 20090420
  35. TEMODAL [Suspect]
     Route: 048
     Dates: start: 20090514, end: 20090518
  36. TEMODAL [Suspect]
     Route: 048
     Dates: start: 20090928, end: 20091002
  37. TEMODAL [Suspect]
     Route: 048
     Dates: start: 20091026, end: 20091030
  38. TEMODAL [Suspect]
     Route: 048
     Dates: start: 20091214, end: 20091218
  39. TEMODAL [Suspect]
     Route: 048
     Dates: start: 20100111, end: 20100115
  40. TEMODAL [Suspect]
     Route: 048
     Dates: start: 20100208, end: 20100212
  41. TEMODAL [Suspect]
     Route: 048
     Dates: start: 20100308, end: 20100312
  42. TEMODAL [Suspect]
     Route: 048
     Dates: start: 20100405, end: 20100409
  43. TEMODAL [Suspect]
     Route: 048
     Dates: start: 20100503, end: 20100504
  44. TEMODAL [Suspect]
     Route: 048
     Dates: start: 20100611, end: 20100615
  45. TEMODAL [Suspect]
     Route: 048
     Dates: start: 20100709, end: 20100713
  46. TEMODAL [Suspect]
     Route: 048
     Dates: start: 20100806, end: 20100810
  47. TEMODAL [Suspect]
     Route: 048
     Dates: start: 20100903, end: 20100907
  48. TEMODAL [Suspect]
     Route: 048
     Dates: start: 20101001, end: 20101005
  49. DEPAKENE [Suspect]
     Indication: EPILEPSY
     Route: 048
     Dates: start: 20061111, end: 20090907
  50. ALEVIATIN [Suspect]
     Indication: STATUS EPILEPTICUS
     Dates: start: 20090625, end: 20090907
  51. TEGRETOL [Suspect]
     Indication: STATUS EPILEPTICUS
     Route: 048
     Dates: start: 20090625, end: 20090907
  52. KYTRIL [Concomitant]
     Indication: PROPHYLAXIS
     Dosage: DAILY DOSAGE UNKNOWN
     Route: 048
     Dates: start: 20070222, end: 20101005
  53. EXCEGRAN [Concomitant]
     Indication: PRODUCT USED FOR UNKNOWN INDICATION
     Route: 048
     Dates: start: 20090601, end: 20090907
  54. TOPIRAMATE [Concomitant]
     Indication: PRODUCT USED FOR UNKNOWN INDICATION
     Route: 048
     Dates: start: 20090603, end: 20090907
  55. DIPRIVAN [Concomitant]
     Indication: PRODUCT USED FOR UNKNOWN INDICATION
     Route: 041
     Dates: start: 20090604, end: 20090630
  56. PHENOBAL [Concomitant]
     Indication: PRODUCT USED FOR UNKNOWN INDICATION
     Route: 042
     Dates: start: 20090610, end: 20090630
  57. ISOZOL [Concomitant]
     Indication: PRODUCT USED FOR UNKNOWN INDICATION
     Route: 042
     Dates: start: 20090612, end: 20090618
  58. BACILLUS SUBTILIS (+) LACTOBACILLUS ACIDOPHILUS (+) STREPTOCOCCUS FAEC [Concomitant]
     Indication: PRODUCT USED FOR UNKNOWN INDICATION
     Route: 048
     Dates: start: 20100501, end: 20100514
  59. DEPAKENE [Concomitant]
     Dosage: DAILY DOSAGE UNKNOWN
     Route: 048
     Dates: start: 20061111, end: 20090907
  60. RINDERON (BETAMETHASONE SODIUM PHOSPHATE) [Concomitant]
     Indication: PROPHYLAXIS
     Dosage: DAILY DOSAGE UNKNOWN
     Route: 048
     Dates: start: 20090710, end: 20101017

REACTIONS (9)
  - Drug reaction with eosinophilia and systemic symptoms [Recovered/Resolved]
  - Acute respiratory distress syndrome [Recovered/Resolved]
  - Convulsion [Recovered/Resolved]
  - Disease progression [Fatal]
  - Drug reaction with eosinophilia and systemic symptoms [Recovered/Resolved]
  - Diarrhoea [Recovered/Resolved]
  - Convulsion [Recovered/Resolved]
  - Multi-organ failure [Recovered/Resolved]
  - Hepatorenal failure [Recovered/Resolved]
